FAERS Safety Report 7684713-4 (Version None)
Quarter: 2011Q3

REPORT INFORMATION
  Report Type: 
  Country: None (occurrence: None)
  Receive Date: 20110810
  Receipt Date: 20110727
  Transmission Date: 20111222
  Serious: Yes (Death, Hospitalization, Other)
  Sender: FDA-Public Use
  Company Number: 20110537

PATIENT
  Age: 45 Year
  Sex: Male

DRUGS (11)
  1. DEXAMETHASONE [Suspect]
     Indication: VOMITING
     Dosage: 2 TAB TWICE DAILY TAPERING ORAL
     Route: 048
     Dates: start: 20110321, end: 20110325
  2. MANNITOL [Concomitant]
  3. SODIUM CHLORIDE INJECTION, USP (2802-25) [Suspect]
     Dosage: 100 TO 250 CC, INTRAVENOUS
     Route: 042
     Dates: start: 20110131, end: 20110408
  4. DEXAMETHASONE SODIUM PHOSPHATE [Suspect]
     Indication: PROPHYLAXIS
     Dosage: 10MG D 1-5 X3 CYCL, D 1-3 4TH INTRAVENOUS
     Route: 042
     Dates: start: 20110131, end: 20110406
  5. DEXAMETHASONE SODIUM PHOSPHATE [Suspect]
     Indication: CHEMOTHERAPY
     Dosage: 10MG D 1-5 X3 CYCL, D 1-3 4TH INTRAVENOUS
     Route: 042
     Dates: start: 20110131, end: 20110406
  6. DEXAMETHASONE SODIUM PHOSPHATE [Suspect]
     Indication: VOMITING
     Dosage: 10MG D 1-5 X3 CYCL, D 1-3 4TH INTRAVENOUS
     Route: 042
     Dates: start: 20110131, end: 20110406
  7. CISPLATIN [Suspect]
     Indication: SEMINOMA
     Dosage: 45 MG D 1-5 X3; 35 MG X1 CYCLE
     Dates: start: 20110131, end: 20110408
  8. ETOPOSIDE [Suspect]
     Indication: SEMINOMA
     Dosage: 230 MG DAY 1-5 X4 CYCLES
     Dates: start: 20110131, end: 20110408
  9. ALOXI [Concomitant]
  10. ZOFRAN, DAY [Concomitant]
  11. EMEND [Concomitant]

REACTIONS (13)
  - FALL [None]
  - PULMONARY EMBOLISM [None]
  - MENTAL STATUS CHANGES [None]
  - VOMITING [None]
  - HEPATOMEGALY [None]
  - PAIN IN EXTREMITY [None]
  - DEHYDRATION [None]
  - DRUG INEFFECTIVE [None]
  - ANAEMIA [None]
  - HYPERGLYCAEMIA [None]
  - WHITE BLOOD CELL COUNT DECREASED [None]
  - ABDOMINAL PAIN [None]
  - NEUTROPENIA [None]
